FAERS Safety Report 6768680-3 (Version None)
Quarter: 2010Q2

REPORT INFORMATION
  Report Type: 
  Country: None (occurrence: None)
  Receive Date: 20100614
  Receipt Date: 20100604
  Transmission Date: 20101027
  Serious: Yes (Hospitalization, Other)
  Sender: FDA-Public Use
  Company Number: CA-ABBOTT-10P-028-0648820-00

PATIENT
  Sex: Female
  Weight: 78.088 kg

DRUGS (10)
  1. HUMIRA [Suspect]
     Indication: CROHN'S DISEASE
     Route: 058
     Dates: start: 20090313, end: 20090701
  2. CODEINE SULFATE [Concomitant]
     Indication: FREQUENT BOWEL MOVEMENTS
     Route: 048
  3. BUSCOPAN [Concomitant]
     Indication: ABDOMINAL PAIN
  4. TYLENOL #1 WITH CODEINE [Concomitant]
     Indication: PAIN
  5. ZOPLICONE [Concomitant]
     Indication: INSOMNIA
  6. BRICANYL TURBINHALER+ TERBUTAMINE SULFATE [Concomitant]
     Indication: ASTHMA
     Dosage: 0.5 MG + 0.25 MG
     Route: 055
  7. PULMICORT [Concomitant]
     Indication: ASTHMA
  8. BENADRYL [Concomitant]
     Indication: SEASONAL ALLERGY
  9. APO-GRAVOL [Concomitant]
     Indication: NAUSEA
  10. IMODIUM [Concomitant]
     Indication: NAUSEA

REACTIONS (7)
  - ABDOMINAL DISTENSION [None]
  - ABDOMINAL PAIN UPPER [None]
  - CONSTIPATION [None]
  - DENTAL CARIES [None]
  - INFLAMMATORY BOWEL DISEASE [None]
  - OSTEOMYELITIS [None]
  - TOOTH INFECTION [None]
